FAERS Safety Report 5232214-5 (Version None)
Quarter: 2007Q1

REPORT INFORMATION
  Report Type: 
  Country: None (occurrence: None)
  Receive Date: 20070207
  Receipt Date: 20070129
  Transmission Date: 20070707
  Serious: Yes (Other)
  Sender: FDA-Public Use
  Company Number: FR-JNJFOC-20070101346

PATIENT
  Age: 33 Year
  Sex: Male

DRUGS (3)
  1. REMICADE [Suspect]
     Dosage: 7 DOSES
     Route: 042
  2. REMICADE [Suspect]
     Indication: CROHN'S DISEASE
     Dosage: 3 DOSES
     Route: 042
  3. AZATHIOPRINE [Suspect]
     Indication: CROHN'S DISEASE

REACTIONS (6)
  - CYTOLYTIC HEPATITIS [None]
  - LYMPHOPENIA [None]
  - PERIRECTAL ABSCESS [None]
  - SUBILEUS [None]
  - THROMBOCYTOPENIA [None]
  - VARICELLA [None]
